FAERS Safety Report 5303378-X (Version None)
Quarter: 2007Q2

REPORT INFORMATION
  Report Type: 
  Country: None (occurrence: None)
  Receive Date: 20070420
  Receipt Date: 20070412
  Transmission Date: 20071010
  Serious: Yes (Hospitalization)
  Sender: FDA-Public Use
  Company Number: JP-JNJFOC-20061102690

PATIENT
  Sex: Female
  Weight: 57 kg

DRUGS (21)
  1. REMICADE [Suspect]
     Route: 042
  2. REMICADE [Suspect]
     Route: 042
  3. REMICADE [Suspect]
     Route: 042
  4. REMICADE [Suspect]
     Indication: RHEUMATOID ARTHRITIS
     Route: 042
  5. PREDONINE [Suspect]
     Indication: DRUG USE FOR UNKNOWN INDICATION
     Route: 048
  6. RHEUMATREX [Suspect]
     Indication: RHEUMATOID ARTHRITIS
     Route: 048
  7. AZULFIDINE EN-TABS [Concomitant]
     Route: 048
  8. AMLODIN [Concomitant]
     Route: 048
  9. TENORMIN [Concomitant]
     Route: 048
  10. EVISTA [Concomitant]
     Route: 048
  11. GASTER D [Concomitant]
     Route: 048
  12. LEVOFLOXACIN [Concomitant]
     Indication: PYREXIA
  13. MAXIPIME [Concomitant]
     Route: 042
  14. MAXIPIME [Concomitant]
     Indication: ANTIBIOTIC PROPHYLAXIS
     Route: 042
  15. MEROPEN [Concomitant]
     Indication: ANTIBIOTIC PROPHYLAXIS
     Route: 042
  16. ETHAMBUTOL HCL [Concomitant]
     Route: 048
  17. RIFAMPICIN [Concomitant]
     Route: 048
  18. ETHIONAMIDE [Concomitant]
  19. STREPTOMYCIN [Concomitant]
  20. ANTI-TUBERCULOUS AGENT [Concomitant]
  21. ANTI-TUBERCULOUS AGENT [Concomitant]

REACTIONS (1)
  - LYMPH NODE TUBERCULOSIS [None]
